FAERS Safety Report 9614762 (Version 1)
Quarter: 2013Q4

REPORT INFORMATION
  Report Type: Spontaneous
  Country: US (occurrence: None)
  Receive Date: 20131009
  Receipt Date: 20131009
  Transmission Date: 20140711
  Serious: Yes (Hospitalization)
  Sender: FDA-Public Use
  Company Number: None

PATIENT
  Age: 28 Year
  Sex: 0
  Weight: 68.04 kg

DRUGS (1)
  1. IMPLANON [Suspect]
     Indication: CONTRACEPTION
     Dosage: GIVEN INTO/UNDER THE SKIN
     Dates: start: 20100215, end: 20130909

REACTIONS (2)
  - Benign intracranial hypertension [None]
  - Eye disorder [None]
